FAERS Safety Report 8903185 (Version 1)
Quarter: 2012Q4

REPORT INFORMATION
  Report Type: 
  Country: US (occurrence: US)
  Receive Date: 20121113
  Receipt Date: 20121113
  Transmission Date: 20130627
  Serious: Yes (Hospitalization)
  Sender: FDA-Public Use
  Company Number: US-ROXANE LABORATORIES, INC.-2012-EU-05226GD

PATIENT
  Age: 42 Year
  Sex: Male

DRUGS (5)
  1. PREDNISONE [Suspect]
     Indication: COLITIS ULCERATIVE
     Dosage: 35 mg
  2. AZATHIOPRINE [Suspect]
     Indication: COLITIS ULCERATIVE
     Dosage: 150 mg
  3. MESALAMINE [Concomitant]
  4. METOPROLOL [Concomitant]
  5. METFORMIN [Concomitant]

REACTIONS (6)
  - Meningitis cryptococcal [Unknown]
  - Cryptococcosis [Recovered/Resolved]
  - Inappropriate antidiuretic hormone secretion [Unknown]
  - Hyponatraemia [Recovered/Resolved]
  - Headache [Unknown]
  - Confusional state [Unknown]
